FAERS Safety Report 11136980 (Version 1)
Quarter: 2015Q2

REPORT INFORMATION
  Report Type: Spontaneous
  Country: US (occurrence: US)
  Receive Date: 20150526
  Receipt Date: 20150526
  Transmission Date: 20150821
  Serious: No
  Sender: FDA-Public Use
  Company Number: US-MALLINCKRODT-T201501440

PATIENT
  Age: 44 Year
  Sex: Female

DRUGS (1)
  1. H.P. ACTHAR [Suspect]
     Active Substance: CORTICOTROPIN
     Indication: DERMATOMYOSITIS
     Dosage: 80 UNITS, TWICE WKLY
     Route: 058
     Dates: start: 20150223

REACTIONS (8)
  - Injection site urticaria [Recovered/Resolved]
  - Nasopharyngitis [Unknown]
  - Agitation [Unknown]
  - Urticaria [Recovered/Resolved]
  - Weight increased [Unknown]
  - Bronchitis [Unknown]
  - Injection site rash [Unknown]
  - Energy increased [Unknown]

NARRATIVE: CASE EVENT DATE: 2015
